FAERS Safety Report 20783967 (Version 1)
Quarter: 2022Q2

REPORT INFORMATION
  Report Type: Spontaneous
  Country: US (occurrence: US)
  Receive Date: 20220504
  Receipt Date: 20220504
  Transmission Date: 20220721
  Serious: No
  Sender: FDA-Public Use
  Company Number: US-TEVA-2022-US-2025989

PATIENT
  Age: 52 Year
  Sex: Female
  Weight: 58.97 kg

DRUGS (3)
  1. AJOVY [Suspect]
     Active Substance: FREMANEZUMAB-VFRM
     Indication: Migraine
     Route: 065
     Dates: start: 202202
  2. EXCEDRIN [Concomitant]
     Active Substance: ACETAMINOPHEN\ASPIRIN\CAFFEINE
     Indication: Headache
  3. OTEZLA [Concomitant]
     Active Substance: APREMILAST
     Indication: Immune system disorder

REACTIONS (5)
  - Puncture site erythema [Unknown]
  - Drug dose omission by device [Unknown]
  - Device malfunction [Unknown]
  - Injury associated with device [Unknown]
  - Device leakage [Unknown]

NARRATIVE: CASE EVENT DATE: 20220401
